FAERS Safety Report 16004994 (Version 1)
Quarter: 2019Q1

REPORT INFORMATION
  Report Type: Spontaneous
  Country: US (occurrence: US)
  Receive Date: 20190226
  Receipt Date: 20190226
  Transmission Date: 20190418
  Serious: Yes (Hospitalization, Other)
  Sender: FDA-Public Use
  Company Number: US-LUPIN PHARMACEUTICALS INC.-2019-01111

PATIENT
  Sex: Female
  Weight: 61 kg

DRUGS (1)
  1. CEFTRIAXONE INJECTION [Suspect]
     Active Substance: CEFTRIAXONE SODIUM
     Indication: ANIMAL BITE
     Dosage: UNK UNK, SINGLE
     Route: 030
     Dates: start: 2018, end: 2018

REACTIONS (4)
  - Product use in unapproved indication [Unknown]
  - Recalled product administered [Unknown]
  - Peripheral swelling [Recovered/Resolved]
  - Sepsis [Recovered/Resolved]

NARRATIVE: CASE EVENT DATE: 2018
